FAERS Safety Report 8113075-3 (Version None)
Quarter: 2012Q1

REPORT INFORMATION
  Report Type: 
  Country: None (occurrence: None)
  Receive Date: 20120203
  Receipt Date: 20120124
  Transmission Date: 20120608
  Serious: Yes (Other)
  Sender: FDA-Public Use
  Company Number: FR-GLAXOSMITHKLINE-B0777076A

PATIENT
  Sex: Female

DRUGS (3)
  1. LAMICTAL [Suspect]
     Indication: EPILEPSY
     Dosage: 100MG TWICE PER DAY
     Route: 048
  2. VALPROATE SODIUM [Suspect]
     Indication: EPILEPSY
     Dosage: 250MG TWICE PER DAY
     Route: 048
  3. FOLIC ACID [Concomitant]
     Route: 065

REACTIONS (7)
  - BLOOD UREA INCREASED [None]
  - OEDEMA PERIPHERAL [None]
  - PROTEINURIA [None]
  - FOCAL SEGMENTAL GLOMERULOSCLEROSIS [None]
  - OLIGURIA [None]
  - PREMATURE BABY [None]
  - MATERNAL EXPOSURE DURING PREGNANCY [None]
